FAERS Safety Report 6666863-4 (Version None)
Quarter: 2010Q2

REPORT INFORMATION
  Report Type: 
  Country: None (occurrence: None)
  Receive Date: 20100401
  Receipt Date: 20100401
  Transmission Date: 20101027
  Serious: Yes (Hospitalization)
  Sender: FDA-Public Use
  Company Number: None

PATIENT
  Age: 68 Year
  Sex: Male
  Weight: 87.9 kg

DRUGS (2)
  1. MEPERIDINE HCL [Suspect]
     Indication: PAIN
     Dosage: 25 MG ONCE IV
     Route: 042
     Dates: start: 20091204, end: 20091204
  2. PROMETHAZINE [Suspect]
     Indication: NAUSEA
     Dosage: 20 MG ONCE IV
     Route: 042
     Dates: start: 20091204, end: 20091204

REACTIONS (8)
  - ABNORMAL BEHAVIOUR [None]
  - AGITATION [None]
  - CONFUSIONAL STATE [None]
  - DYSTONIA [None]
  - NAUSEA [None]
  - PAIN [None]
  - SINUS TACHYCARDIA [None]
  - VOMITING [None]
